FAERS Safety Report 5982599-7 (Version None)
Quarter: 2008Q4

REPORT INFORMATION
  Report Type: 
  Country: None (occurrence: None)
  Receive Date: 20081208
  Receipt Date: 20081201
  Transmission Date: 20090506
  Serious: Yes (Other)
  Sender: FDA-Public Use
  Company Number: PHHY2008GB30437

PATIENT

DRUGS (1)
  1. ACLASTA [Suspect]

REACTIONS (2)
  - CONFUSIONAL STATE [None]
  - PARANOIA [None]
